FAERS Safety Report 21664199 (Version 5)
Quarter: 2023Q1

REPORT INFORMATION
  Report Type: Spontaneous
  Country: GB (occurrence: GB)
  Receive Date: 20221130
  Receipt Date: 20230120
  Transmission Date: 20230418
  Serious: Yes (Death, Hospitalization, Other)
  Sender: FDA-Public Use
  Company Number: GB-GLAXOSMITHKLINE-HOS17260

PATIENT

DRUGS (15)
  1. ACETAMINOPHEN [Suspect]
     Active Substance: ACETAMINOPHEN
     Indication: Analgesic therapy
     Dosage: UNK
     Route: 048
  2. DICLOFENAC SODIUM [Suspect]
     Active Substance: DICLOFENAC SODIUM
     Indication: Analgesic therapy
     Dosage: UNK
     Route: 065
  3. OMEPRAZOLE [Suspect]
     Active Substance: OMEPRAZOLE
     Indication: Product used for unknown indication
     Dosage: UNK
     Route: 065
  4. AUGMENTIN [Suspect]
     Active Substance: AMOXICILLIN\CLAVULANATE POTASSIUM
     Indication: Infection
     Dosage: UNK
     Route: 065
  5. AUGMENTIN [Suspect]
     Active Substance: AMOXICILLIN\CLAVULANATE POTASSIUM
     Indication: Sepsis
  6. CLAVULANIC ACID [Suspect]
     Active Substance: CLAVULANIC ACID
     Indication: Product used for unknown indication
     Dosage: UNK
     Route: 065
  7. GENTAMICIN [Suspect]
     Active Substance: GENTAMICIN
     Indication: Infection
     Dosage: UNK
     Route: 065
  8. GENTAMICIN [Suspect]
     Active Substance: GENTAMICIN
     Indication: Sepsis
  9. LEVOFLOXACIN [Suspect]
     Active Substance: LEVOFLOXACIN
     Indication: Infection
     Dosage: UNK
     Route: 065
  10. LEVOFLOXACIN [Suspect]
     Active Substance: LEVOFLOXACIN
     Indication: Sepsis
     Dosage: UNK
     Route: 065
  11. METRONIDAZOLE SODIUM [Suspect]
     Active Substance: METRONIDAZOLE SODIUM
     Indication: Infection
     Dosage: UNK
     Route: 065
  12. METRONIDAZOLE SODIUM [Suspect]
     Active Substance: METRONIDAZOLE SODIUM
     Indication: Sepsis
  13. AMOXICILLIN [Suspect]
     Active Substance: AMOXICILLIN
     Indication: Product used for unknown indication
     Dosage: UNK
     Route: 065
  14. VANCOMYCIN HYDROCHLORIDE [Suspect]
     Active Substance: VANCOMYCIN HYDROCHLORIDE
     Indication: Infection
     Dosage: UNK
     Route: 065
  15. METOCLOPRAMIDE HYDROCHLORIDE [Suspect]
     Active Substance: METOCLOPRAMIDE HYDROCHLORIDE
     Indication: Product used for unknown indication
     Dosage: UNK
     Route: 065

REACTIONS (5)
  - Myocardial infarction [Fatal]
  - Metabolic acidosis [Fatal]
  - Disorientation [Fatal]
  - Aminoaciduria [Fatal]
  - Fistula [Unknown]

NARRATIVE: CASE EVENT DATE: 20070101
